FAERS Safety Report 6256179-2 (Version None)
Quarter: 2009Q3

REPORT INFORMATION
  Report Type: 
  Country: None (occurrence: None)
  Receive Date: 20090706
  Receipt Date: 20090629
  Transmission Date: 20100115
  Serious: Yes (Death, Other)
  Sender: FDA-Public Use
  Company Number: PHHY2009BR26302

PATIENT
  Sex: Female

DRUGS (2)
  1. FORASEQ [Suspect]
  2. OXYGEN [Concomitant]

REACTIONS (2)
  - IDIOPATHIC PULMONARY FIBROSIS [None]
  - LUNG NEOPLASM MALIGNANT [None]
